FAERS Safety Report 8343512-0 (Version None)
Quarter: 2012Q2

REPORT INFORMATION
  Report Type: 
  Country: None (occurrence: None)
  Receive Date: 20120508
  Receipt Date: 20120507
  Transmission Date: 20120825
  Serious: No
  Sender: FDA-Public Use
  Company Number: PHHY2012SE038725

PATIENT
  Age: 66 Year
  Sex: Male

DRUGS (7)
  1. CLOPIDOGREL [Concomitant]
  2. SIMVASTATIN [Concomitant]
  3. HYDROXOCOBALAMIN [Concomitant]
  4. LANTUS [Concomitant]
  5. ATENOLOL [Concomitant]
  6. TASIGNA [Suspect]
     Dosage: 600 MG, DAILY
     Route: 048
     Dates: start: 20120321, end: 20120328
  7. FOLIC ACID [Concomitant]

REACTIONS (3)
  - PRURITUS [None]
  - BACK PAIN [None]
  - RASH [None]
